FAERS Safety Report 4452804-7 (Version None)
Quarter: 2004Q3

REPORT INFORMATION
  Report Type: 
  Country: None (occurrence: None)
  Receive Date: 20040813
  Receipt Date: 20040511
  Transmission Date: 20050211
  Serious: No
  Sender: FDA-Public Use
  Company Number: S04-USA-02996-04

PATIENT
  Age: 82 Year
  Sex: Female
  Weight: 57.1532 kg

DRUGS (8)
  1. NAMENDA [Suspect]
     Indication: DEMENTIA ALZHEIMER'S TYPE
     Dosage: 5 MG QD PO
     Route: 048
     Dates: start: 20040318, end: 20040321
  2. ARICEPT [Concomitant]
  3. FOSAMAX [Concomitant]
  4. REMERON [Concomitant]
  5. PRILOSEC [Concomitant]
  6. OSCAL (CALCIUM CARBONATE) [Concomitant]
  7. SEROQUEL [Concomitant]
  8. SEROQUEL [Concomitant]

REACTIONS (5)
  - CRYING [None]
  - EATING DISORDER [None]
  - FALL [None]
  - HYPERVIGILANCE [None]
  - TEARFULNESS [None]
